FAERS Safety Report 16090533 (Version 1)
Quarter: 2019Q1

REPORT INFORMATION
  Report Type: Report from Study
  Country: AU (occurrence: AU)
  Receive Date: 20190319
  Receipt Date: 20190319
  Transmission Date: 20190418
  Serious: Yes (Other)
  Sender: FDA-Public Use
  Company Number: AU-BAYER-2019-032132

PATIENT
  Age: 37 Year
  Sex: Female

DRUGS (2)
  1. NEXAVAR [Suspect]
     Active Substance: SORAFENIB
     Indication: HEPATOCELLULAR CARCINOMA
     Dosage: UNK
  2. STIVARGA [Suspect]
     Active Substance: REGORAFENIB
     Indication: HEPATOCELLULAR CARCINOMA
     Dosage: 160 MG
     Route: 048
     Dates: start: 20190222, end: 20190307

REACTIONS (4)
  - Pain in extremity [Recovering/Resolving]
  - Blister [Recovering/Resolving]
  - Hepatocellular carcinoma [None]
  - Fatigue [Recovering/Resolving]

NARRATIVE: CASE EVENT DATE: 20190301
